FAERS Safety Report 8805988 (Version 3)
Quarter: 2013Q1

REPORT INFORMATION
  Report Type: Spontaneous
  Country: IT (occurrence: None)
  Receive Date: 20120918
  Receipt Date: 20121121
  Transmission Date: 20140127
  Serious: Yes (Other)
  Sender: FDA-Public Use
  Company Number: GER/ITL/12/0025845

PATIENT
  Age: 36 Year
  Sex: Female

DRUGS (12)
  1. CLOPIDOGREL [Suspect]
     Indication: PRODUCT USED FOR UNKNOWN INDICATION
  2. MORPHINE [Suspect]
     Indication: ANALGESIC THERAPY
     Route: 040
  3. REMIFENTANIL [Suspect]
     Indication: INDUCTION OF ANAESTHESIA
     Dosage: (NOT OTHERWISE SPECIFIED)
     Route: 042
  4. METOPROLOL [Suspect]
     Indication: PRODUCT USED FOR UNKNOWN INDICATION
     Dosage: (NOT OTHERWISE SPECIFIED)
     Route: 042
  5. ACETYLSALICYLIC ACID (ACETYLSALICYLIC ACID) [Suspect]
     Indication: PRODUCT USED FOR UNKNOWN INDICATION
  6. ROSUVASTATIN [Suspect]
     Indication: PRODUCT USED FOR UNKNOWN INDICATION
  7. METHYLDOPA [Suspect]
     Indication: PRODUCT USED FOR UNKNOWN INDICATION
  8. LABETALOL [Suspect]
     Indication: PRODUCT USED FOR UNKNOWN INDICATION
     Dosage: (NOT OTHERWISE SPECIFIED)
     Route: 042
  9. THIOPENTAL SODIUM [Suspect]
     Indication: INDUCTION OF ANAESTHESIA
     Dosage: (NOT OTHERWISE SPECIFIED)
     Route: 042
  10. ROCURONIUM [Suspect]
  11. SEVOFLURANE [Suspect]
     Indication: MECHANICAL VENTILATION
     Route: 045
  12. TELMISARTAN [Suspect]
     Indication: PRODUCT USED FOR UNKNOWN INDICATION

REACTIONS (10)
  - Hypertensive crisis [None]
  - Pregnancy [None]
  - Maternal exposure during pregnancy [None]
  - Angina unstable [None]
  - Dyspnoea [None]
  - Ventricular hypokinesia [None]
  - Myocardial infarction [None]
  - Myocardial ischaemia [None]
  - Caesarean section [None]
  - Uterine hypotonus [None]
